FAERS Safety Report 4412219-4 (Version None)
Quarter: 2004Q3

REPORT INFORMATION
  Report Type: 
  Country: None (occurrence: None)
  Receive Date: 20040727
  Receipt Date: 20040715
  Transmission Date: 20050211
  Serious: Yes (Other)
  Sender: FDA-Public Use
  Company Number: 2004224217GB

PATIENT
  Sex: Male
  Weight: 4.6 kg

DRUGS (4)
  1. ALDACTONE [Suspect]
     Dosage: 0.4 MG/KG, DAILY,
  2. TROMBYL (ACETYLSALICYLIC ACID, ACETYLSALICYLIC ACID) TABLET [Suspect]
     Dosage: 5 MG/KG, DAILY,
  3. FUROSEMIDE [Suspect]
     Indication: HEART DISEASE CONGENITAL
     Dosage: 1 MG/KG, DAILY, IV
     Route: 042
  4. DIAZOXIDE [Suspect]
     Dosage: 5 MG/KG, DAILY,

REACTIONS (4)
  - DRUG INTERACTION [None]
  - HYPERGLYCAEMIA [None]
  - HYPOGLYCAEMIA NEONATAL [None]
  - NEONATAL DISORDER [None]
